FAERS Safety Report 24710103 (Version 1)
Quarter: 2024Q4

REPORT INFORMATION
  Report Type: Other
  Country: US (occurrence: US)
  Receive Date: 20241209
  Receipt Date: 20241209
  Transmission Date: 20250114
  Serious: Yes (Hospitalization, Other)
  Sender: Kanchan Healthcare
  Company Number: US-Kanchan Healthcare INC-2166732

PATIENT
  Age: 53 Year
  Sex: Male

DRUGS (7)
  1. DEXAMETHASONE [Suspect]
     Active Substance: DEXAMETHASONE
     Indication: COVID-19
  2. PREDNISONE [Suspect]
     Active Substance: PREDNISONE
  3. HEPARIN [Concomitant]
     Active Substance: HEPARIN SODIUM
  4. PIPERACILLIN AND TAZOBACTAM [Concomitant]
     Active Substance: PIPERACILLIN SODIUM\TAZOBACTAM SODIUM
  5. VANCOMYCIN HYDROCHLORIDE [Concomitant]
     Active Substance: VANCOMYCIN HYDROCHLORIDE
  6. REMDESIVIR [Concomitant]
     Active Substance: REMDESIVIR
  7. OXYGEN [Concomitant]
     Active Substance: OXYGEN

REACTIONS (2)
  - Pneumonia cryptococcal [Recovering/Resolving]
  - Off label use [Unknown]
